FAERS Safety Report 12700240 (Version 3)
Quarter: 2016Q4

REPORT INFORMATION
  Report Type: Spontaneous
  Country: US (occurrence: US)
  Receive Date: 20160830
  Receipt Date: 20161025
  Transmission Date: 20170207
  Serious: Yes (Hospitalization, Other)
  Sender: FDA-Public Use
  Company Number: US-BAYER-2016-168247

PATIENT
  Age: 44 Year
  Sex: Female
  Weight: 78.91 kg

DRUGS (2)
  1. GADAVIST [Suspect]
     Active Substance: GADOBUTROL
     Indication: SPINAL LAMINECTOMY
     Dosage: 7.5 ML, ONCE
     Route: 042
     Dates: start: 20160829, end: 20160829
  2. GADAVIST [Suspect]
     Active Substance: GADOBUTROL
     Indication: NUCLEAR MAGNETIC RESONANCE IMAGING SPINAL

REACTIONS (10)
  - Speech disorder [Recovered/Resolved]
  - Sneezing [Recovered/Resolved]
  - Swelling face [Recovering/Resolving]
  - Dysphonia [Recovered/Resolved]
  - Pharyngeal oedema [Recovering/Resolving]
  - Dyspnoea [None]
  - Cardiac flutter [Recovered/Resolved]
  - Erythema [Recovered/Resolved]
  - Throat irritation [Recovered/Resolved]
  - Dizziness [Recovered/Resolved]

NARRATIVE: CASE EVENT DATE: 20160829
